FAERS Safety Report 5420559-5 (Version None)
Quarter: 2007Q3

REPORT INFORMATION
  Report Type: 
  Country: None (occurrence: None)
  Receive Date: 20070816
  Receipt Date: 20070731
  Transmission Date: 20080115
  Serious: Yes (Other)
  Sender: FDA-Public Use
  Company Number: 8025932

PATIENT

DRUGS (2)
  1. KEPPRA [Suspect]
     Dosage: 1 G 2/D
  2. DEMOCYCLINE [Concomitant]

REACTIONS (1)
  - RENAL FAILURE [None]
